FAERS Safety Report 16202264 (Version 1)
Quarter: 2019Q2

REPORT INFORMATION
  Report Type: Spontaneous
  Country: US (occurrence: US)
  Receive Date: 20190415
  Receipt Date: 20190415
  Transmission Date: 20190711
  Serious: No
  Sender: FDA-Public Use
  Company Number: None

PATIENT
  Age: 30 Year
  Sex: Female
  Weight: 54 kg

DRUGS (1)
  1. KRATOM IN A UNMARKED BAG [Suspect]
     Active Substance: HERBALS\MITRAGYNINE

REACTIONS (3)
  - Vomiting [None]
  - Drug screen positive [None]
  - Headache [None]

NARRATIVE: CASE EVENT DATE: 20190402
